FAERS Safety Report 6710303-3 (Version None)
Quarter: 2010Q2

REPORT INFORMATION
  Report Type: 
  Country: None (occurrence: None)
  Receive Date: 20100430
  Receipt Date: 20100415
  Transmission Date: 20101027
  Serious: Yes (Hospitalization, Other)
  Sender: FDA-Public Use
  Company Number: 2010000951

PATIENT
  Age: 72 Year
  Sex: Male

DRUGS (6)
  1. TARCEVA [Suspect]
     Indication: NON-SMALL CELL LUNG CANCER
     Dosage: (150 MG, QD), ORAL
     Route: 048
     Dates: start: 20100306, end: 20100316
  2. AVASTIN [Suspect]
     Indication: NON-SMALL CELL LUNG CANCER
     Dosage: (Q15D), INTRAVENOUS
     Route: 042
     Dates: start: 20091101, end: 20100221
  3. PEMETREXED [Concomitant]
  4. OXALIPLATIN [Concomitant]
  5. ZOLEDRONIC ACID [Concomitant]
  6. CHINESE MEDICINE NOS [Concomitant]

REACTIONS (7)
  - ANAEMIA [None]
  - DIARRHOEA [None]
  - EPISTAXIS [None]
  - GAMMA-GLUTAMYLTRANSFERASE INCREASED [None]
  - GASTROINTESTINAL HAEMORRHAGE [None]
  - OEDEMA [None]
  - OEDEMA PERIPHERAL [None]
